FAERS Safety Report 6075603-1 (Version None)
Quarter: 2009Q1

REPORT INFORMATION
  Report Type: 
  Country: None (occurrence: None)
  Receive Date: 20090210
  Receipt Date: 20090210
  Transmission Date: 20090719
  Serious: Yes (Hospitalization)
  Sender: FDA-Public Use
  Company Number: None

PATIENT
  Sex: Male
  Weight: 75.4 kg

DRUGS (7)
  1. CYCLOPHOSPHAMIDE [Suspect]
     Dosage: 9000 MG
  2. METHOTREXATE [Suspect]
     Dosage: 40 MG
  3. TACROLIMUS [Suspect]
     Dosage: 20.132 MG
  4. THIOTEPA [Suspect]
     Dosage: 760 MG
  5. MORPHINE [Concomitant]
  6. BENADRYL [Concomitant]
  7. METHYLPREDNISOLONE 4MG TAB [Concomitant]

REACTIONS (9)
  - CAPILLARY LEAK SYNDROME [None]
  - DEHYDRATION [None]
  - DIASTOLIC HYPOTENSION [None]
  - ENCEPHALOPATHY [None]
  - HYPOVOLAEMIA [None]
  - IMMUNOSUPPRESSANT DRUG LEVEL INCREASED [None]
  - OEDEMA PERIPHERAL [None]
  - RENAL FAILURE [None]
  - SOMNOLENCE [None]
